FAERS Safety Report 6788010-0 (Version None)
Quarter: 2010Q2

REPORT INFORMATION
  Report Type: 
  Country: None (occurrence: None)
  Receive Date: 20100623
  Receipt Date: 20071210
  Transmission Date: 20101027
  Serious: No
  Sender: FDA-Public Use
  Company Number: US-PFIZER INC-2007083609

PATIENT
  Sex: Female
  Weight: 66 kg

DRUGS (9)
  1. MEDROXYPROGESTERONE ACETATE [Suspect]
     Indication: HORMONE REPLACEMENT THERAPY
     Route: 048
     Dates: start: 20070101
  2. MEDROXYPROGESTERONE ACETATE [Suspect]
     Indication: NIGHT SWEATS
  3. MEDROXYPROGESTERONE ACETATE [Suspect]
     Indication: HOT FLUSH
  4. PREMARIN [Suspect]
     Indication: HORMONE REPLACEMENT THERAPY
  5. ACTONEL [Concomitant]
  6. ADVAIR DISKUS 100/50 [Concomitant]
  7. PROTONIX [Concomitant]
  8. LEVOTHYROXINE SODIUM [Concomitant]
  9. CALCIUM CARBONATE [Concomitant]

REACTIONS (1)
  - DRUG INEFFECTIVE [None]
